FAERS Safety Report 6735698-6 (Version None)
Quarter: 2010Q2

REPORT INFORMATION
  Report Type: 
  Country: None (occurrence: None)
  Receive Date: 20100519
  Receipt Date: 20100506
  Transmission Date: 20101027
  Serious: Yes (Death, Other)
  Sender: FDA-Public Use
  Company Number: A-US2010-35807

PATIENT
  Age: 74 Year
  Sex: Male

DRUGS (3)
  1. TRACLEER [Suspect]
     Indication: PULMONARY HYPERTENSION
     Dosage: ORAL
     Route: 048
     Dates: start: 20090130, end: 20100501
  2. TRACLEER [Suspect]
     Dosage: ORAL
  3. COUMADIN [Concomitant]

REACTIONS (1)
  - HEPATIC CANCER METASTATIC [None]
